FAERS Safety Report 19029244 (Version 2)
Quarter: 2021Q3

REPORT INFORMATION
  Report Type: Spontaneous
  Country: US (occurrence: US)
  Receive Date: 20210318
  Receipt Date: 20210921
  Transmission Date: 20211014
  Serious: Yes (Hospitalization)
  Sender: FDA-Public Use
  Company Number: US-ELI_LILLY_AND_COMPANY-US202103004284

PATIENT
  Age: 67 Year
  Sex: Male
  Weight: 161 kg

DRUGS (1)
  1. HUMALOG [Suspect]
     Active Substance: INSULIN LISPRO
     Indication: DIABETES MELLITUS
     Dosage: 3 U, TID
     Route: 058

REACTIONS (7)
  - Asthenia [Recovered/Resolved]
  - Urinary tract infection [Recovered/Resolved]
  - Irritability [Recovering/Resolving]
  - Blood glucose increased [Recovering/Resolving]
  - Gastrointestinal sounds abnormal [Recovering/Resolving]
  - Pollakiuria [Recovering/Resolving]
  - Confusional state [Recovering/Resolving]

NARRATIVE: CASE EVENT DATE: 20210306
